FAERS Safety Report 4450061-9 (Version None)
Quarter: 2004Q3

REPORT INFORMATION
  Report Type: 
  Country: None (occurrence: None)
  Receive Date: 20040804
  Receipt Date: 20031230
  Transmission Date: 20050211
  Serious: Yes (Other)
  Sender: FDA-Public Use
  Company Number: 203980

PATIENT
  Sex: Female

DRUGS (4)
  1. HERCEPTIN [Suspect]
     Indication: BREAST CANCER METASTATIC
     Dosage: 1/WEEK, Q3W, INTRAVENOUS
     Route: 042
     Dates: start: 20030101, end: 20030101
  2. HERCEPTIN [Suspect]
     Indication: BREAST CANCER METASTATIC
     Dosage: 1/WEEK, Q3W, INTRAVENOUS
     Route: 042
     Dates: start: 20030901
  3. HERCEPTIN [Suspect]
     Indication: BREAST CANCER METASTATIC
     Dosage: 1/WEEK, Q3W, INTRAVENOUS
     Route: 042
     Dates: start: 20031201
  4. ARIMIDEX [Concomitant]

REACTIONS (1)
  - EJECTION FRACTION DECREASED [None]
